FAERS Safety Report 17674405 (Version 1)
Quarter: 2020Q2

REPORT INFORMATION
  Report Type: Report from Study
  Country: None (occurrence: US)
  Receive Date: 20200416
  Receipt Date: 20200416
  Transmission Date: 20200714
  Serious: No
  Sender: FDA-Public Use
  Company Number: US-BIOVITRUM-2019US3585

PATIENT
  Age: 19 Year
  Sex: Male

DRUGS (1)
  1. KINERET [Suspect]
     Active Substance: ANAKINRA
     Indication: CRYOPYRIN ASSOCIATED PERIODIC SYNDROME
     Dosage: INJECT 500 MG SUBCUTANEOUSLY IN THE MORNING AND 200 MG SUBCUTANEOUSLY IN EVENING?800MG ON DAYS WITH
     Route: 058
     Dates: start: 20190406

REACTIONS (3)
  - Drug hypersensitivity [Unknown]
  - Off label use [Unknown]
  - Abscess [Unknown]

NARRATIVE: CASE EVENT DATE: 20190406
